FAERS Safety Report 5392808-3 (Version None)
Quarter: 2007Q3

REPORT INFORMATION
  Report Type: 
  Country: None (occurrence: None)
  Receive Date: 20070720
  Receipt Date: 20070709
  Transmission Date: 20080115
  Serious: Yes (Other)
  Sender: FDA-Public Use
  Company Number: US-PFIZER INC-2007056451

PATIENT
  Sex: Female
  Weight: 68 kg

DRUGS (2)
  1. LYRICA [Suspect]
     Indication: MIGRAINE
     Dates: start: 20070501, end: 20070601
  2. BOTOX [Suspect]

REACTIONS (3)
  - EXFOLIATIVE RASH [None]
  - LOCAL SWELLING [None]
  - PRECANCEROUS SKIN LESION [None]
